FAERS Safety Report 14667519 (Version 1)
Quarter: 2018Q1

REPORT INFORMATION
  Report Type: Spontaneous
  Country: FR (occurrence: FR)
  Receive Date: 20180322
  Receipt Date: 20180322
  Transmission Date: 20180509
  Serious: Yes (Other)
  Sender: FDA-Public Use
  Company Number: FR-MERCK KGAA-2044300

PATIENT
  Age: 63 Year
  Sex: Female

DRUGS (1)
  1. NOVOTHYROX [Suspect]
     Active Substance: LEVOTHYROXINE SODIUM
     Indication: BASEDOW^S DISEASE
     Dates: start: 201703

REACTIONS (16)
  - Insomnia [None]
  - Dyspepsia [None]
  - Apathy [None]
  - Asthenia [None]
  - Angina pectoris [None]
  - Fatigue [None]
  - Pleuritic pain [None]
  - Impaired driving ability [None]
  - Social avoidant behaviour [None]
  - Balance disorder [None]
  - Depression [None]
  - Muscle spasms [None]
  - Anxiety [None]
  - Dizziness [None]
  - Suicidal ideation [None]
  - Sleep disorder [None]

NARRATIVE: CASE EVENT DATE: 201703
